FAERS Safety Report 6102090-7 (Version None)
Quarter: 2009Q1

REPORT INFORMATION
  Report Type: 
  Country: None (occurrence: None)
  Receive Date: 20090303
  Receipt Date: 20090303
  Transmission Date: 20090719
  Serious: Yes (Other)
  Sender: FDA-Public Use
  Company Number: None

PATIENT
  Age: 55 Year
  Sex: Female
  Weight: 74.8435 kg

DRUGS (1)
  1. NICOTINE [Suspect]
     Indication: SMOKING CESSATION THERAPY
     Dosage: 12-15 INHALATIONS EVERY HALF HOUR INHAL 20 TIMES PER DAY
     Route: 055
     Dates: start: 20080101, end: 20090227

REACTIONS (1)
  - RENAL PAIN [None]
